FAERS Safety Report 8395537-7 (Version None)
Quarter: 2012Q2

REPORT INFORMATION
  Report Type: 
  Country: None (occurrence: None)
  Receive Date: 20120530
  Receipt Date: 20110629
  Transmission Date: 20120825
  Serious: No
  Sender: FDA-Public Use
  Company Number: US-GLAXOSMITHKLINE-A0933875A

PATIENT
  Age: 62 Year
  Sex: Female

DRUGS (2)
  1. VENTOLIN [Suspect]
     Indication: LUNG DISORDER
     Dosage: 1PUFF AS REQUIRED
     Route: 055
     Dates: start: 20110201
  2. ALBUTEROL [Concomitant]

REACTIONS (9)
  - INSOMNIA [None]
  - DYSPNOEA [None]
  - DISTURBANCE IN ATTENTION [None]
  - DRUG INEFFECTIVE [None]
  - TREMOR [None]
  - PRODUCT QUALITY ISSUE [None]
  - ASTHENIA [None]
  - HEART RATE INCREASED [None]
  - BRONCHOSTENOSIS [None]
